FAERS Safety Report 5825537-X (Version None)
Quarter: 2008Q3

REPORT INFORMATION
  Report Type: 
  Country: None (occurrence: None)
  Receive Date: 20080723
  Receipt Date: 20080711
  Transmission Date: 20090109
  Serious: Yes (Other)
  Sender: FDA-Public Use
  Company Number: 2008BI017560

PATIENT
  Age: 66 Year
  Sex: Male
  Weight: 108.8633 kg

DRUGS (4)
  1. ZEVALIN [Suspect]
     Indication: NON-HODGKIN'S LYMPHOMA
     Dates: start: 20060301, end: 20060301
  2. RITUXIMAB [Concomitant]
  3. RBC TRANSFUSION [Concomitant]
  4. PLATELETS [Concomitant]

REACTIONS (2)
  - MYELODYSPLASTIC SYNDROME [None]
  - THROMBOSIS [None]
